FAERS Safety Report 19948627 (Version 12)
Quarter: 2022Q4

REPORT INFORMATION
  Report Type: Report from Study
  Country: US (occurrence: US)
  Receive Date: 20211013
  Receipt Date: 20221224
  Transmission Date: 20230113
  Serious: Yes (Hospitalization)
  Sender: FDA-Public Use
  Company Number: US-NOVARTISPH-NVSC2021US233693

PATIENT
  Sex: Female
  Weight: 56.236 kg

DRUGS (10)
  1. TREPROSTINIL [Suspect]
     Active Substance: TREPROSTINIL
     Indication: Pulmonary arterial hypertension
     Dosage: 18 NG/KG/MIN, CONT
     Route: 042
     Dates: start: 20211007
  2. TREPROSTINIL [Suspect]
     Active Substance: TREPROSTINIL
     Dosage: 30 NG/KG/MIN, CONT
     Route: 042
     Dates: start: 20211007
  3. TREPROSTINIL [Suspect]
     Active Substance: TREPROSTINIL
     Dosage: 19.5 NG/KG/MIN, CONT
     Route: 042
  4. TREPROSTINIL [Suspect]
     Active Substance: TREPROSTINIL
     Dosage: 30 NG/KG/MIN, CONT
     Route: 042
  5. TREPROSTINIL [Suspect]
     Active Substance: TREPROSTINIL
     Dosage: 30 NG/KG/MIN, CONT
     Route: 042
  6. TREPROSTINIL [Suspect]
     Active Substance: TREPROSTINIL
     Dosage: 34 NG/KG/ MIN, CONT
     Route: 042
  7. UPTRAVI [Suspect]
     Active Substance: SELEXIPAG
     Indication: Product used for unknown indication
     Dosage: UNK
     Route: 065
  8. OPSUMIT [Concomitant]
     Active Substance: MACITENTAN
     Indication: Product used for unknown indication
     Dosage: UNK
     Route: 065
  9. REMODULIN [Concomitant]
     Active Substance: TREPROSTINIL
     Indication: Product used for unknown indication
     Dosage: 19.5 NG/KG/MIN
     Route: 042
  10. HEPARIN [Concomitant]
     Active Substance: HEPARIN SODIUM
     Indication: Product used for unknown indication
     Dosage: UNK
     Route: 065

REACTIONS (22)
  - Pruritus [Unknown]
  - Complication associated with device [Unknown]
  - Eye pain [Unknown]
  - Abdominal discomfort [Unknown]
  - Contusion [Unknown]
  - Erythema [Unknown]
  - Seasonal allergy [Unknown]
  - Scratch [Unknown]
  - Illness [Unknown]
  - Insomnia [Unknown]
  - Disorientation [Unknown]
  - Cerebral disorder [Unknown]
  - Pulmonary pain [Unknown]
  - Palpitations [Unknown]
  - Arthralgia [Unknown]
  - Headache [Unknown]
  - Pain in jaw [Unknown]
  - Muscle spasms [Unknown]
  - Nausea [Unknown]
  - Chest pain [Unknown]
  - Injection site rash [Unknown]
  - Accidental exposure to product [Unknown]
